FAERS Safety Report 8184813-9 (Version None)
Quarter: 2012Q1

REPORT INFORMATION
  Report Type: 
  Country: None (occurrence: None)
  Receive Date: 20120305
  Receipt Date: 20120227
  Transmission Date: 20120608
  Serious: Yes (Hospitalization, Other)
  Sender: FDA-Public Use
  Company Number: US-BAYER-2011-036250

PATIENT
  Age: 41 Year
  Sex: Female
  Weight: 54 kg

DRUGS (1)
  1. YASMIN [Suspect]
     Indication: CONTRACEPTION
     Dosage: UNK
     Dates: start: 20020101, end: 20020725

REACTIONS (9)
  - GENERAL PHYSICAL HEALTH DETERIORATION [None]
  - ANXIETY [None]
  - VENTRICULAR EXTRASYSTOLES [None]
  - CHEST PAIN [None]
  - EMOTIONAL DISTRESS [None]
  - DYSPNOEA [None]
  - FATIGUE [None]
  - PULMONARY EMBOLISM [None]
  - ASTHENIA [None]
